FAERS Safety Report 8826390 (Version 1)
Quarter: 2012Q4

REPORT INFORMATION
  Report Type: 
  Country: DE (occurrence: DE)
  Receive Date: 20121008
  Receipt Date: 20121008
  Transmission Date: 20130627
  Serious: Yes (Hospitalization)
  Sender: FDA-Public Use
  Company Number: DE-RANBAXY-2012RR-60845

PATIENT
  Age: 53 Year
  Sex: Female
  Weight: 53 kg

DRUGS (1)
  1. CIPROFLOXACIN [Suspect]
     Indication: DIVERTICULITIS
     Dosage: UNK
     Route: 048
     Dates: start: 201106

REACTIONS (4)
  - Bone pain [Not Recovered/Not Resolved]
  - Groin pain [Not Recovered/Not Resolved]
  - Musculoskeletal pain [Not Recovered/Not Resolved]
  - Pain in extremity [Not Recovered/Not Resolved]
